FAERS Safety Report 8775864 (Version 4)
Quarter: 2012Q4

REPORT INFORMATION
  Report Type: 
  Country: US (occurrence: US)
  Receive Date: 20120910
  Receipt Date: 20121211
  Transmission Date: 20130627
  Serious: No
  Sender: FDA-Public Use
  Company Number: US-VERTEX PHARMACEUTICAL INC.-2012-020328

PATIENT
  Age: 62 Year
  Sex: Female
  Weight: 82 kg

DRUGS (8)
  1. VX-950 (TELAPREVIR) [Suspect]
     Indication: HEPATITIS C
     Dosage: 750 mg, tid
     Route: 048
  2. PEGASYS [Suspect]
     Indication: HEPATITIS C
     Dosage: UNK
  3. RIBAVIRIN [Concomitant]
     Indication: HEPATITIS C
     Dosage: 200 mg, qd
  4. FISH OIL [Concomitant]
     Dosage: 1000 mg, qd
  5. VITAMIN D /00107901/ [Concomitant]
     Dosage: 1000 ut, UNK
  6. BENICAR HCT [Concomitant]
     Dosage: 32.5 mg, qd
  7. MULTIVITAMIN                       /00097801/ [Concomitant]
  8. VITAMIN C                          /00008001/ [Concomitant]
     Dosage: 500 mg, qd

REACTIONS (10)
  - Chromaturia [Unknown]
  - Influenza like illness [Unknown]
  - Headache [Unknown]
  - Insomnia [Unknown]
  - Cough [Unknown]
  - Throat irritation [Unknown]
  - Fatigue [Unknown]
  - Retching [Unknown]
  - Dysgeusia [Unknown]
  - Haemoglobin decreased [Unknown]
